FAERS Safety Report 6814660-9 (Version None)
Quarter: 2010Q2

REPORT INFORMATION
  Report Type: 
  Country: None (occurrence: None)
  Receive Date: 20100629
  Receipt Date: 20100617
  Transmission Date: 20101027
  Serious: Yes (Other)
  Sender: FDA-Public Use
  Company Number: 2010AP001263

PATIENT
  Age: 84 Year
  Sex: Male

DRUGS (4)
  1. ZOLPIDEM TARTRATE [Suspect]
     Indication: INSOMNIA
     Dosage: 5 MG; TAB_FILM; PO
     Route: 048
     Dates: start: 20100531, end: 20100601
  2. AMLODIPINE [Concomitant]
  3. BICALUTAMIDE [Concomitant]
  4. PHENOBARBITAL SODIUM 100MG CAP [Concomitant]

REACTIONS (3)
  - DELIRIUM [None]
  - HALLUCINATION [None]
  - SLEEP DISORDER [None]
